FAERS Safety Report 5070948-6 (Version None)
Quarter: 2006Q3

REPORT INFORMATION
  Report Type: 
  Country: None (occurrence: None)
  Receive Date: 20060714
  Receipt Date: 20060424
  Transmission Date: 20061208
  Serious: No
  Sender: FDA-Public Use
  Company Number: 2006SP001816

PATIENT
  Age: 56 Year
  Sex: Female
  Weight: 75.7507 kg

DRUGS (5)
  1. LUNESTA [Suspect]
     Indication: INSOMNIA
     Dosage: 3 MG;HS;ORAL
     Route: 048
     Dates: start: 20051001, end: 20060401
  2. CLONAZEPAM [Concomitant]
  3. EFFEXOR [Concomitant]
  4. NEURONTIN [Concomitant]
  5. TRAZODONE HCL [Concomitant]

REACTIONS (1)
  - INSOMNIA [None]
